FAERS Safety Report 8270119-6 (Version None)
Quarter: 2012Q2

REPORT INFORMATION
  Report Type: 
  Country: None (occurrence: None)
  Receive Date: 20120410
  Receipt Date: 20120403
  Transmission Date: 20120825
  Serious: Yes (Other)
  Sender: FDA-Public Use
  Company Number: PHHY2012BR003314

PATIENT
  Sex: Female
  Weight: 64 kg

DRUGS (2)
  1. DIOVAN HCT [Suspect]
     Indication: HYPERTENSION
     Dosage: 1 TABLET DAILY
     Route: 048
  2. LEVOTHYROXINE SODIUM [Concomitant]
     Indication: HYPOTHYROIDISM
     Dosage: 1 DF DAILY
     Route: 048

REACTIONS (6)
  - DENGUE FEVER [None]
  - PYREXIA [None]
  - HYPOTHYROIDISM [None]
  - MALAISE [None]
  - ASTHENIA [None]
  - NAUSEA [None]
